FAERS Safety Report 9941016 (Version 3)
Quarter: 2014Q1

REPORT INFORMATION
  Report Type: Spontaneous
  Country: JP (occurrence: JP)
  Receive Date: 20140303
  Receipt Date: 20140321
  Transmission Date: 20141002
  Serious: Yes (Other)
  Sender: FDA-Public Use
  Company Number: JP-JNJFOC-20140215478

PATIENT
  Age: 13 Year
  Sex: Female

DRUGS (7)
  1. TOPINA [Suspect]
     Indication: CONVULSION
     Route: 048
  2. DEPAKENE [Suspect]
     Indication: CONVULSION
     Route: 048
  3. PHENYTOIN [Suspect]
     Indication: CONVULSION
     Route: 048
  4. LAMOTRIGINE [Concomitant]
     Route: 048
  5. ZONISAMIDE [Concomitant]
     Route: 048
  6. LEVETIRACETAM [Concomitant]
     Route: 048
  7. CLOBAZAM [Concomitant]
     Route: 048

REACTIONS (3)
  - Status epilepticus [Unknown]
  - White blood cell count decreased [Unknown]
  - Somnolence [Unknown]
